FAERS Safety Report 9728569 (Version 3)
Quarter: 2014Q1

REPORT INFORMATION
  Report Type: Spontaneous
  Country: AU (occurrence: AU)
  Receive Date: 20131204
  Receipt Date: 20140205
  Transmission Date: 20141002
  Serious: Yes (Death, Other)
  Sender: FDA-Public Use
  Company Number: AU-CELGENEUS-008-21660-13113569

PATIENT
  Age: 84 Year
  Sex: Male
  Weight: 73.9 kg

DRUGS (3)
  1. ABRAXANE [Suspect]
     Indication: PANCREATIC CARCINOMA
     Route: 041
     Dates: start: 20130523, end: 20130926
  2. ENOXAPARIN [Concomitant]
     Indication: DEEP VEIN THROMBOSIS
     Route: 058
     Dates: start: 20130606
  3. METOCLOPRAMIDE [Concomitant]
     Indication: NAUSEA
     Dosage: 30 MILLIGRAM
     Route: 048
     Dates: start: 20130523

REACTIONS (5)
  - Anaemia [Not Recovered/Not Resolved]
  - Pancreatic carcinoma metastatic [Fatal]
  - Decreased appetite [Not Recovered/Not Resolved]
  - Fatigue [Not Recovered/Not Resolved]
  - Haematuria [Not Recovered/Not Resolved]
